FAERS Safety Report 7767036-4 (Version None)
Quarter: 2011Q3

REPORT INFORMATION
  Report Type: 
  Country: None (occurrence: None)
  Receive Date: 20110922
  Receipt Date: 20100311
  Transmission Date: 20111222
  Serious: No
  Sender: FDA-Public Use
  Company Number: US-ASTRAZENECA-2010SE07971

PATIENT
  Age: 38 Year
  Sex: Female
  Weight: 122.9 kg

DRUGS (17)
  1. SEROQUEL [Suspect]
     Indication: ANXIETY
     Dosage: 25 MG, 3 DAILY
     Route: 048
     Dates: start: 20020101, end: 20050101
  2. ZYPREXA [Concomitant]
     Indication: DEPRESSION
     Dates: start: 19990101, end: 20020801
  3. CLONAZEPAM [Concomitant]
     Dates: start: 20021203
  4. ATENOLOL [Concomitant]
     Dates: start: 20021111
  5. EFFEXOR XR [Concomitant]
     Dates: start: 20030110
  6. HYDROCHLOROTHIA [Concomitant]
     Dates: start: 20030110
  7. SEROQUEL [Suspect]
     Route: 048
     Dates: start: 20030206
  8. ZYPREXA [Concomitant]
     Indication: BIPOLAR DISORDER
     Dates: start: 19990101, end: 20020801
  9. MIRAPEX [Concomitant]
     Dates: start: 20030110
  10. WELLBUTRIN [Concomitant]
     Dates: start: 20021203
  11. SEROQUEL [Suspect]
     Indication: SLEEP DISORDER
     Dosage: 25 MG, 3 DAILY
     Route: 048
     Dates: start: 20020101, end: 20050101
  12. DETROL LA [Concomitant]
     Dates: start: 20021004
  13. TOPAMAX [Concomitant]
     Dates: start: 20021203
  14. PERCOCET [Concomitant]
     Indication: PAIN
     Dosage: 5/325 MG PRN
     Route: 048
     Dates: start: 20040902
  15. VIOXX [Concomitant]
     Dates: start: 20030130
  16. SEROQUEL [Suspect]
     Route: 048
     Dates: start: 20030206
  17. DEPAKOTE ER [Concomitant]
     Dates: start: 20030113

REACTIONS (4)
  - TYPE 2 DIABETES MELLITUS [None]
  - PAIN [None]
  - ARTHRALGIA [None]
  - EAR PAIN [None]
